FAERS Safety Report 17065467 (Version 1)
Quarter: 2019Q4

REPORT INFORMATION
  Report Type: Spontaneous
  Country: US (occurrence: US)
  Receive Date: 20191024
  Receipt Date: 20191024
  Transmission Date: 20200122
  Serious: Yes (Hospitalization)
  Sender: FDA-Public Use
  Company Number: None

PATIENT
  Age: 60 Year
  Sex: Female

DRUGS (12)
  1. FOLIC ACID. [Concomitant]
     Active Substance: FOLIC ACID
  2. BENZONATE [Concomitant]
     Active Substance: BENZONATATE
  3. POT CL MICRO [Concomitant]
  4. PRMETHAZINE SYP [Concomitant]
  5. ENBREL [Suspect]
     Active Substance: ETANERCEPT
     Indication: RHEUMATOID ARTHRITIS
     Route: 058
     Dates: start: 20170830
  6. AZITHROMYCIN ANHYDROUS. [Concomitant]
     Active Substance: AZITHROMYCIN ANHYDROUS
  7. CEFUROXIME. [Concomitant]
     Active Substance: CEFUROXIME
  8. ATORVASTATIN [Concomitant]
     Active Substance: ATORVASTATIN
  9. DOXYCYCL [Concomitant]
  10. PROAIR HFA [Concomitant]
     Active Substance: ALBUTEROL SULFATE
  11. TRIAMT HCTZ [Concomitant]
  12. OMEPRAZOLE. [Concomitant]
     Active Substance: OMEPRAZOLE

REACTIONS (2)
  - Pneumonia [None]
  - Bronchitis [None]

NARRATIVE: CASE EVENT DATE: 20191023
